FAERS Safety Report 5376124-1 (Version None)
Quarter: 2007Q3

REPORT INFORMATION
  Report Type: 
  Country: None (occurrence: None)
  Receive Date: 20070702
  Receipt Date: 20070702
  Transmission Date: 20080115
  Serious: Yes (Other)
  Sender: FDA-Public Use
  Company Number: None

PATIENT
  Age: 80 Year
  Sex: Female
  Weight: 58.0604 kg

DRUGS (2)
  1. METRONIDAZOLE [Suspect]
     Indication: ROSACEA
     Dosage: APPLY DAILY ON FACE TWICE A DAY TOPICAL
     Route: 061
     Dates: start: 20070409
  2. MULTIVITAMIN [Concomitant]

REACTIONS (1)
  - DRUG INEFFECTIVE [None]
